FAERS Safety Report 6834386-5 (Version None)
Quarter: 2010Q3

REPORT INFORMATION
  Report Type: 
  Country: None (occurrence: None)
  Receive Date: 20100712
  Receipt Date: 20070418
  Transmission Date: 20110219
  Serious: No
  Sender: FDA-Public Use
  Company Number: US-PFIZER INC-2007031951

PATIENT
  Sex: Male
  Weight: 101.15 kg

DRUGS (2)
  1. CHANTIX [Suspect]
     Indication: SMOKING CESSATION THERAPY
     Dosage: 0.5 - 2 MG/DAY
     Route: 048
     Dates: start: 20070415
  2. CODEINE [Concomitant]

REACTIONS (3)
  - DRUG INTOLERANCE [None]
  - FEELING JITTERY [None]
  - INSOMNIA [None]
